FAERS Safety Report 5335615-X (Version None)
Quarter: 2007Q2

REPORT INFORMATION
  Report Type: 
  Country: None (occurrence: None)
  Receive Date: 20070522
  Receipt Date: 20070507
  Transmission Date: 20071010
  Serious: Yes (Death, Hospitalization)
  Sender: FDA-Public Use
  Company Number: T200700490

PATIENT
  Age: 72 Year
  Sex: Male

DRUGS (14)
  1. OXYCODONE/ACETAMINOPHEN(OXYCODONE HCL, ACETAMINOPHEN) TABLET, 10/325MG [Suspect]
     Indication: PAIN IN EXTREMITY
     Dosage: 1-2 TABLETS Q3-4H, ORAL
     Route: 048
     Dates: start: 20070501
  2. OXYCODONE/ACETAMINOPHEN(OXYCODONE HCL, ACETAMINOPHEN) TABLET, 10/325MG [Suspect]
     Indication: PROCEDURAL PAIN
     Dosage: 1-2 TABLETS Q3-4H, ORAL
     Route: 048
     Dates: start: 20070501
  3. CLONAZEPAM [Concomitant]
  4. ALLEGRA [Concomitant]
  5. NORCO [Concomitant]
  6. OMEPRAZOLE [Concomitant]
  7. TRAZODONE HCL [Concomitant]
  8. TIMOPTIC [Concomitant]
  9. ERY-TAB (ERYTHROMYCIN) [Concomitant]
  10. CALCIUM (CALCIUM) [Concomitant]
  11. MULTIVITAMIN /00831701/ (VITAMIN NOS) [Concomitant]
  12. TYLENOL [Concomitant]
  13. DRIXORAL COLD + ALLERGY (DEXBROMPHENIRAMINE MALEATE, PSEUDOEPHEDRINE S [Concomitant]
  14. CHOLESTYRAMINE RESIN (COLESTYRAMINE) [Concomitant]

REACTIONS (3)
  - CARDIAC ARREST [None]
  - DRUG INEFFECTIVE [None]
  - TOXICOLOGIC TEST ABNORMAL [None]
